FAERS Safety Report 5812614-2 (Version None)
Quarter: 2008Q3

REPORT INFORMATION
  Report Type: 
  Country: None (occurrence: None)
  Receive Date: 20080711
  Receipt Date: 20080626
  Transmission Date: 20090109
  Serious: Yes (Other)
  Sender: FDA-Public Use
  Company Number: OPER20080134

PATIENT
  Age: 41 Year
  Sex: Female

DRUGS (5)
  1. OPANA ER [Suspect]
     Indication: BACK PAIN
     Dosage: 1 TABLET BID, PER ORAL; 1 TABLET QAM, PER ORAL
     Route: 048
     Dates: start: 20080622, end: 20080601
  2. OPANA ER [Suspect]
     Indication: BACK PAIN
     Dosage: 1 TABLET BID, PER ORAL; 1 TABLET QAM, PER ORAL
     Route: 048
     Dates: start: 20080530, end: 20080621
  3. OPANA ER [Suspect]
     Indication: BACK PAIN
     Dosage: 1 TABLET QPM, PER ORAL; 1 TABLET BID, PER ORAL
     Route: 048
     Dates: start: 20080622, end: 20080601
  4. OPANA ER [Suspect]
     Indication: BACK PAIN
     Dosage: 1 TABLET QPM, PER ORAL; 1 TABLET BID, PER ORAL
     Route: 048
     Dates: start: 20080601
  5. OPANA [Suspect]
     Indication: BREAKTHROUGH PAIN
     Dosage: 1 TABLET TID, PER ORAL
     Route: 048
     Dates: start: 20080530

REACTIONS (4)
  - DIZZINESS [None]
  - INCORRECT DOSE ADMINISTERED [None]
  - PHARMACEUTICAL PRODUCT COMPLAINT [None]
  - SOMNOLENCE [None]
